FAERS Safety Report 8949156 (Version 2)
Quarter: 2013Q3

REPORT INFORMATION
  Report Type: Spontaneous
  Country: FR (occurrence: FR)
  Receive Date: 20121206
  Receipt Date: 20130711
  Transmission Date: 20140515
  Serious: Yes (Hospitalization)
  Sender: FDA-Public Use
  Company Number: FR-BAYER-2012-125877

PATIENT
  Age: 68 Year
  Sex: Male

DRUGS (7)
  1. NEXAVAR [Suspect]
     Indication: HEPATIC CANCER
     Dosage: 800 MG, QD
     Route: 048
     Dates: start: 20120820, end: 20120924
  2. VIDAZA [Suspect]
     Indication: MYELODYSPLASTIC SYNDROME
     Dosage: 79 MG, 5 DAYS PER MONTH
     Route: 058
     Dates: start: 20090323
  3. LASILIX [Concomitant]
     Dosage: 40 MG, QD, LONGTERM
     Route: 048
  4. INEXIUM [Concomitant]
     Dosage: 1 DF, QD, LONGTERM
     Route: 048
  5. INSPRA [Concomitant]
     Dosage: UNK
     Dates: start: 20130618
  6. PERINDOPRIL [Concomitant]
     Dosage: UNK
     Dates: start: 20130618
  7. PREVISCAN [Concomitant]
     Dosage: UNK
     Dates: start: 20130618

REACTIONS (2)
  - Cardiac failure [Not Recovered/Not Resolved]
  - Atrial fibrillation [Not Recovered/Not Resolved]
